FAERS Safety Report 14761786 (Version 1)
Quarter: 2018Q2

REPORT INFORMATION
  Report Type: Spontaneous
  Country: US (occurrence: US)
  Receive Date: 20180416
  Receipt Date: 20180416
  Transmission Date: 20180711
  Serious: No
  Sender: FDA-Public Use
  Company Number: US-BION-006433

PATIENT
  Age: 42 Year
  Sex: Male
  Weight: 112 kg

DRUGS (4)
  1. CETIRIZINE [Concomitant]
     Active Substance: CETIRIZINE HYDROCHLORIDE
  2. DIPHENHYDRAMINE. [Concomitant]
     Active Substance: DIPHENHYDRAMINE
  3. ALEVE [Suspect]
     Active Substance: NAPROXEN SODIUM
     Indication: PAIN
     Dosage: 1 LIQUID GEL AS NEEDED
     Route: 048
     Dates: start: 2017
  4. EXTRA STRENGTH BAYER BACK + BODY ASPIRIN [Concomitant]
     Indication: PAIN
     Route: 048
     Dates: start: 2016, end: 2016

REACTIONS (2)
  - Incorrect drug administration duration [Not Recovered/Not Resolved]
  - Product use in unapproved indication [Unknown]

NARRATIVE: CASE EVENT DATE: 2016
